FAERS Safety Report 5497005-9 (Version None)
Quarter: 2007Q4

REPORT INFORMATION
  Report Type: 
  Country: None (occurrence: None)
  Receive Date: 20071017
  Receipt Date: 20070724
  Transmission Date: 20080405
  Serious: Yes (Other)
  Sender: FDA-Public Use
  Company Number: 2007061531

PATIENT
  Age: 36 Year
  Sex: Female
  Weight: 49.9 kg

DRUGS (1)
  1. DEPO-SUBQ PROVERA 104 [Suspect]
     Indication: CONTRACEPTION
     Dosage: ONE SINGLE DOSE, SUBCUTANEOUS
     Route: 058
     Dates: start: 20060717, end: 20060717

REACTIONS (2)
  - INCORRECT DOSE ADMINISTERED [None]
  - INJECTION SITE ATROPHY [None]
